FAERS Safety Report 23527758 (Version 1)
Quarter: 2024Q1

REPORT INFORMATION
  Report Type: Spontaneous
  Country: US (occurrence: US)
  Receive Date: 20240215
  Receipt Date: 20240215
  Transmission Date: 20240410
  Serious: No
  Sender: FDA-Public Use
  Company Number: US-BRISTOL-MYERS SQUIBB COMPANY-2024-023883

PATIENT
  Age: 88 Year
  Sex: Female
  Weight: 70.3 kg

DRUGS (1)
  1. ELIQUIS [Suspect]
     Active Substance: APIXABAN
     Indication: Thrombosis
     Route: 048

REACTIONS (4)
  - Cough [Unknown]
  - Memory impairment [Unknown]
  - Visual impairment [Unknown]
  - Circumstance or information capable of leading to medication error [Unknown]
